FAERS Safety Report 9796836 (Version 2)
Quarter: 2014Q1

REPORT INFORMATION
  Report Type: Spontaneous
  Country: US (occurrence: US)
  Receive Date: 20140103
  Receipt Date: 20140131
  Transmission Date: 20141002
  Serious: Yes (Hospitalization, Other)
  Sender: FDA-Public Use
  Company Number: US-GILEAD-2014-0091077

PATIENT
  Age: 70 Year
  Sex: Male

DRUGS (12)
  1. LETAIRIS [Suspect]
     Indication: PULMONARY HYPERTENSION
     Dosage: 5 MG, QD
     Route: 065
     Dates: start: 20120711
  2. TYVASO [Concomitant]
  3. ADCIRCA [Concomitant]
  4. METOPROLOL [Concomitant]
  5. LYRICA [Concomitant]
  6. SINGULAIR [Concomitant]
  7. ONGLYZA [Concomitant]
  8. METFORMIN [Concomitant]
  9. ASPIRIN [Concomitant]
  10. PLAVIX [Concomitant]
  11. GLUCOSAMINE [Concomitant]
  12. LIVALO [Concomitant]

REACTIONS (1)
  - Cholecystitis acute [Not Recovered/Not Resolved]
